FAERS Safety Report 12586626 (Version 2)
Quarter: 2018Q1

REPORT INFORMATION
  Report Type: Spontaneous
  Country: US (occurrence: US)
  Receive Date: 20160725
  Receipt Date: 20180314
  Transmission Date: 20180508
  Serious: No
  Sender: FDA-Public Use
  Company Number: US-PFIZER INC-2016339700

PATIENT
  Age: 46 Year
  Sex: Female
  Weight: 66 kg

DRUGS (5)
  1. ADVIL PM [Suspect]
     Active Substance: DIPHENHYDRAMINE CITRATE\IBUPROFEN
     Indication: DYSMENORRHOEA
     Dosage: 600 MG, 2X/DAY
     Route: 048
     Dates: start: 20160708, end: 20160710
  2. ADVIL [Suspect]
     Active Substance: IBUPROFEN
     Indication: DYSMENORRHOEA
     Dosage: UNK
  3. ADVIL [Suspect]
     Active Substance: IBUPROFEN
     Indication: BACK PAIN
  4. ADVIL PM [Suspect]
     Active Substance: DIPHENHYDRAMINE CITRATE\IBUPROFEN
     Indication: BACK PAIN
  5. RITE AID PAIN RELIEF IBUPROFEN [Concomitant]
     Indication: MUSCLE SPASMS
     Dosage: 200 MG, ONE TIME
     Route: 048
     Dates: start: 20160706, end: 20160706

REACTIONS (7)
  - Product packaging confusion [Recovering/Resolving]
  - Dizziness [Recovered/Resolved]
  - Swelling face [Recovering/Resolving]
  - Wrong drug administered [Recovered/Resolved]
  - Accidental overdose [Recovered/Resolved]
  - Drug ineffective [Unknown]
  - Presyncope [Recovered/Resolved]

NARRATIVE: CASE EVENT DATE: 20160708
